FAERS Safety Report 20045587 (Version 1)
Quarter: 2021Q4

REPORT INFORMATION
  Report Type: Spontaneous
  Country: CA (occurrence: CA)
  Receive Date: 20211108
  Receipt Date: 20211108
  Transmission Date: 20220303
  Serious: Yes (Other)
  Sender: FDA-Public Use
  Company Number: CA-TEVA-2021-CA-1973174

PATIENT
  Age: 50 Year
  Sex: Male
  Weight: 70 kg

DRUGS (3)
  1. VENLAFAXINE HYDROCHLORIDE [Suspect]
     Active Substance: VENLAFAXINE HYDROCHLORIDE
     Indication: Nerve injury
     Route: 048
  2. LYRICA [Concomitant]
     Active Substance: PREGABALIN
     Route: 065
  3. DILAUDID [Concomitant]
     Active Substance: HYDROMORPHONE HYDROCHLORIDE
     Route: 065

REACTIONS (15)
  - Abdominal discomfort [Unknown]
  - Abdominal discomfort [Unknown]
  - Bedridden [Unknown]
  - Diarrhoea [Unknown]
  - Diarrhoea [Unknown]
  - Feeding disorder [Unknown]
  - Gastritis [Unknown]
  - Loss of personal independence in daily activities [Unknown]
  - Nausea [Unknown]
  - Nausea [Unknown]
  - Pain [Unknown]
  - Pain [Unknown]
  - Vomiting [Unknown]
  - Vomiting [Unknown]
  - Weight decreased [Unknown]
